FAERS Safety Report 6615471-X (Version None)
Quarter: 2010Q1

REPORT INFORMATION
  Report Type: 
  Country: None (occurrence: None)
  Receive Date: 20100301
  Receipt Date: 20100219
  Transmission Date: 20100710
  Serious: Yes (Other)
  Sender: FDA-Public Use
  Company Number: 2009SP41343

PATIENT
  Age: 51 Year
  Sex: Female

DRUGS (14)
  1. MIRTAZAPINE [Suspect]
     Indication: DEPRESSIVE SYMPTOM
     Dosage: 3.75 MG; QD; PO
     Route: 048
     Dates: start: 20091201, end: 20091204
  2. SODIUM VALPROATE [Concomitant]
  3. ZOLPIDEM TARTRATE [Concomitant]
  4. QUAZEPAM [Concomitant]
  5. ETIZOLAM [Concomitant]
  6. TOLEDOMIN [Concomitant]
  7. AMOXAN [Concomitant]
  8. DEPROMEL [Concomitant]
  9. TRIAZOLAM [Concomitant]
  10. REBAMIPIDE [Concomitant]
  11. SENNOSIDE [Concomitant]
  12. AMLODIPINE BESYLATE [Concomitant]
  13. LOXOPROFEN SODIUM HYDRATE [Concomitant]
  14. SODIUM VALPROATE [Concomitant]

REACTIONS (7)
  - AGGRESSION [None]
  - ANGER [None]
  - CRYING [None]
  - FEAR OF ANIMALS [None]
  - FEELING ABNORMAL [None]
  - FEELING JITTERY [None]
  - IMPULSE-CONTROL DISORDER [None]
